APPROVED DRUG PRODUCT: DEXMETHYLPHENIDATE HYDROCHLORIDE
Active Ingredient: DEXMETHYLPHENIDATE HYDROCHLORIDE
Strength: 15MG
Dosage Form/Route: CAPSULE, EXTENDED RELEASE;ORAL
Application: A210279 | Product #003 | TE Code: AB
Applicant: ADARE PHARMACEUTICALS INC
Approved: Oct 9, 2018 | RLD: No | RS: No | Type: RX